FAERS Safety Report 7792756-5 (Version None)
Quarter: 2011Q4

REPORT INFORMATION
  Report Type: 
  Country: None (occurrence: None)
  Receive Date: 20111003
  Receipt Date: 20110926
  Transmission Date: 20120403
  Serious: Yes (Death)
  Sender: FDA-Public Use
  Company Number: US-CELGENEUS-163-21880-11092707

PATIENT
  Sex: Female
  Weight: 63.106 kg

DRUGS (13)
  1. FISH OIL [Concomitant]
     Dosage: 1
     Route: 048
     Dates: start: 20010101
  2. REVLIMID [Suspect]
     Indication: MYELODYSPLASTIC SYNDROME
     Dosage: 10 MILLIGRAM
     Route: 048
     Dates: start: 20110617, end: 20110919
  3. ATENOLOL [Concomitant]
     Dosage: 50 MILLIGRAM
     Route: 048
     Dates: start: 19800101
  4. CALCIUM/D [Concomitant]
     Dosage: 600/5000
     Route: 048
     Dates: start: 20090101
  5. PLAVIX [Concomitant]
     Dosage: 75 MILLIGRAM
     Route: 048
     Dates: start: 20090101
  6. LEVAQUIN [Concomitant]
     Route: 048
     Dates: start: 20110714, end: 20110723
  7. REVLIMID [Suspect]
  8. M.V.I. [Concomitant]
     Dosage: 1
     Route: 048
     Dates: start: 20090101
  9. SERTRALINE HYDROCHLORIDE [Concomitant]
     Dosage: 50 MILLIGRAM
     Route: 048
     Dates: start: 20110101
  10. FOLIC ACID [Concomitant]
     Dosage: 400 MILLIGRAM
     Route: 048
     Dates: start: 20090101
  11. ASPIRIN [Concomitant]
     Dosage: 81 MILLIGRAM
     Route: 048
     Dates: start: 19800101
  12. ALPRAZOLAM [Concomitant]
     Route: 048
     Dates: start: 20110101
  13. AMLODIPINE [Concomitant]
     Dosage: 10 MILLIGRAM
     Route: 048
     Dates: start: 20090101

REACTIONS (3)
  - PNEUMONIA [None]
  - ATRIAL FIBRILLATION [None]
  - RESPIRATORY FAILURE [None]
